FAERS Safety Report 6660221-4 (Version None)
Quarter: 2010Q1

REPORT INFORMATION
  Report Type: 
  Country: None (occurrence: None)
  Receive Date: 20100331
  Receipt Date: 20100323
  Transmission Date: 20100710
  Serious: No
  Sender: FDA-Public Use
  Company Number: 2009BI029876

PATIENT
  Sex: Female

DRUGS (2)
  1. TYSABRI [Suspect]
     Indication: MULTIPLE SCLEROSIS
     Route: 042
     Dates: start: 20090817
  2. BETASERON [Concomitant]
     Indication: MULTIPLE SCLEROSIS

REACTIONS (8)
  - BURNING SENSATION [None]
  - CENTRAL NERVOUS SYSTEM LESION [None]
  - DIZZINESS [None]
  - DYSSTASIA [None]
  - FATIGUE [None]
  - HEADACHE [None]
  - NAUSEA [None]
  - PAIN [None]
